FAERS Safety Report 14898711 (Version 1)
Quarter: 2018Q2

REPORT INFORMATION
  Report Type: Report from Study
  Country: US (occurrence: US)
  Receive Date: 20180515
  Receipt Date: 20180515
  Transmission Date: 20180711
  Serious: Yes (Hospitalization)
  Sender: FDA-Public Use
  Company Number: US-ACTELION-A-NJ2018-172092

PATIENT
  Age: 13 Year
  Sex: Male

DRUGS (3)
  1. PLAVIX [Interacting]
     Active Substance: CLOPIDOGREL BISULFATE
     Indication: THROMBOSIS
     Route: 065
  2. OPSUMIT [Suspect]
     Active Substance: MACITENTAN
     Indication: PULMONARY ARTERIAL HYPERTENSION
     Dosage: 10 MG, QD
     Route: 048
     Dates: start: 20170104
  3. UPTRAVI [Suspect]
     Active Substance: SELEXIPAG
     Indication: PULMONARY ARTERIAL HYPERTENSION
     Dosage: 1600 MCG, BID
     Route: 048
     Dates: start: 20160802

REACTIONS (7)
  - Pneumonia [Unknown]
  - Drug interaction [Unknown]
  - Neck pain [Unknown]
  - Back pain [Unknown]
  - Thrombosis [Unknown]
  - Pain in jaw [Unknown]
  - Eye pain [Unknown]

NARRATIVE: CASE EVENT DATE: 2017
